FAERS Safety Report 22784644 (Version 2)
Quarter: 2024Q2

REPORT INFORMATION
  Report Type: Report from Study
  Country: IT (occurrence: IT)
  Receive Date: 20230804
  Receipt Date: 20240531
  Transmission Date: 20240715
  Serious: Yes (Other)
  Sender: FDA-Public Use
  Company Number: None

PATIENT
  Age: 74 Year
  Sex: Female

DRUGS (2)
  1. VENETOCLAX [Suspect]
     Active Substance: VENETOCLAX
     Indication: Acute myeloid leukaemia
     Route: 048
     Dates: start: 20230613, end: 20230706
  2. AZACITIDINE [Suspect]
     Active Substance: AZACITIDINE
     Indication: Acute myeloid leukaemia
     Dosage: FOR SEVEN DAY
     Route: 058
     Dates: start: 20230613, end: 20230622

REACTIONS (3)
  - Blood beta-D-glucan positive [Recovered/Resolved]
  - Oedema peripheral [Recovering/Resolving]
  - Phlebitis [Recovering/Resolving]

NARRATIVE: CASE EVENT DATE: 20230717
